FAERS Safety Report 12508953 (Version 1)
Quarter: 2016Q2

REPORT INFORMATION
  Report Type: Spontaneous
  Country: US (occurrence: US)
  Receive Date: 20160629
  Receipt Date: 20160629
  Transmission Date: 20160815
  Serious: No
  Sender: FDA-Public Use
  Company Number: US-WATSON-2016-08860

PATIENT
  Sex: Male

DRUGS (2)
  1. ACITRETIN (WATSON) [Suspect]
     Active Substance: ACITRETIN
     Indication: PSORIASIS
     Dosage: 25 MG, DAILY
     Route: 048
     Dates: start: 20160320
  2. ACITRETIN (WATSON) [Suspect]
     Active Substance: ACITRETIN
     Dosage: 25 MG, DAILY
     Route: 048
     Dates: start: 20160320

REACTIONS (3)
  - Sensory disturbance [Not Recovered/Not Resolved]
  - Drug monitoring procedure not performed [Unknown]
  - Hypertension [Not Recovered/Not Resolved]

NARRATIVE: CASE EVENT DATE: 2016
